FAERS Safety Report 17163157 (Version 1)
Quarter: 2019Q4

REPORT INFORMATION
  Report Type: Spontaneous
  Country: JP (occurrence: JP)
  Receive Date: 20191217
  Receipt Date: 20191217
  Transmission Date: 20200122
  Serious: Yes (Hospitalization)
  Sender: FDA-Public Use
  Company Number: JP-ELI_LILLY_AND_COMPANY-JP201910014733

PATIENT
  Age: 75 Year
  Sex: Female
  Weight: 48 kg

DRUGS (16)
  1. FLUOROURACIL. [Concomitant]
     Active Substance: FLUOROURACIL
     Indication: COLON CANCER
     Dosage: UNK
     Dates: start: 20190919, end: 20190921
  2. IRINOTECAN [Concomitant]
     Active Substance: IRINOTECAN
     Indication: COLON CANCER
     Dosage: UNK
     Dates: start: 20190919, end: 20190919
  3. BUCILLAMINE [Concomitant]
     Active Substance: BUCILLAMINE
  4. LEVOFOLINATE CALCIUM [Concomitant]
     Active Substance: LEVOLEUCOVORIN CALCIUM
     Indication: COLON CANCER
     Dosage: UNK
     Dates: start: 20190919, end: 20190919
  5. FUROSEMIDE. [Concomitant]
     Active Substance: FUROSEMIDE
  6. PREDNISOLONE. [Concomitant]
     Active Substance: PREDNISOLONE
  7. URSO [Concomitant]
     Active Substance: URSODIOL
  8. CLARITH [Concomitant]
     Active Substance: CLARITHROMYCIN
  9. PARIET [Concomitant]
     Active Substance: RABEPRAZOLE SODIUM
  10. CARERAM [Concomitant]
     Active Substance: IGURATIMOD
  11. CANDESARTAN. [Concomitant]
     Active Substance: CANDESARTAN
  12. CINAL [Concomitant]
     Active Substance: ASCORBIC ACID\CALCIUM PANTOTHENATE
  13. CYRAMZA [Suspect]
     Active Substance: RAMUCIRUMAB
     Indication: COLON CANCER
     Route: 042
  14. IRSOGLADINE MALEATE [Concomitant]
     Active Substance: IRSOGLADINE MALEATE
  15. AZELNIDIPINE [Concomitant]
     Active Substance: AZELNIDIPINE
  16. PYDOXAL [Concomitant]
     Active Substance: PYRIDOXAL

REACTIONS (1)
  - Subcutaneous haematoma [Recovering/Resolving]

NARRATIVE: CASE EVENT DATE: 20191023
